FAERS Safety Report 10610211 (Version 1)
Quarter: 2014Q4

REPORT INFORMATION
  Report Type: Spontaneous
  Country: US (occurrence: US)
  Receive Date: 20141126
  Receipt Date: 20141126
  Transmission Date: 20150529
  Serious: No
  Sender: FDA-Public Use
  Company Number: US-GLAXOSMITHKLINE-A1047147A

PATIENT

DRUGS (11)
  1. VENTOLIN [Concomitant]
     Active Substance: ALBUTEROL SULFATE
  2. FLOVENT [Suspect]
     Active Substance: FLUTICASONE PROPIONATE
     Indication: ASTHMA
     Dosage: ROTA 100MCG
     Route: 055
     Dates: start: 20130831
  3. KLOR-CON TABLET [Concomitant]
  4. MUCINEX DM [Concomitant]
     Active Substance: DEXTROMETHORPHAN HYDROBROMIDE\GUAIFENESIN
  5. MUCINEX DM [Concomitant]
     Active Substance: DEXTROMETHORPHAN HYDROBROMIDE\GUAIFENESIN
  6. GINGER. [Concomitant]
     Active Substance: GINGER
  7. FISH OIL [Concomitant]
     Active Substance: FISH OIL
  8. MULTIVITES [Concomitant]
  9. GARLIC. [Concomitant]
     Active Substance: GARLIC
  10. TEA [Concomitant]
     Active Substance: TEA LEAF
  11. VITAMIN C [Concomitant]
     Active Substance: ASCORBIC ACID

REACTIONS (4)
  - Drug ineffective [Unknown]
  - Underdose [Unknown]
  - Ill-defined disorder [Unknown]
  - Overdose [Unknown]
